FAERS Safety Report 7005854 (Version 8)
Quarter: 2015Q2

REPORT INFORMATION
  Report Type: Report from Study
  Country: DE (occurrence: DE)
  Receive Date: 20090528
  Receipt Date: 20150404
  Transmission Date: 20150821
  Serious: Yes (Hospitalization, Other)
  Sender: FDA-Public Use
  Company Number: PHHO2009DE06312

PATIENT

DRUGS (4)
  1. MYFORTIC [Suspect]
     Active Substance: MYCOPHENOLATE SODIUM
     Indication: RENAL TRANSPLANT
     Dosage: 52 MG, BID
     Route: 048
     Dates: start: 20080910
  2. URBASON [Suspect]
     Active Substance: METHYLPREDNISOLONE
     Indication: RENAL TRANSPLANT
     Dosage: 2.4 MG, QD
     Route: 048
     Dates: start: 20080910
  3. CYCLOSPORIN [Suspect]
     Active Substance: CYCLOSPORINE
     Indication: RENAL TRANSPLANT
     Dosage: 25 MG, BID
     Route: 048
     Dates: start: 20080910, end: 20090729
  4. EVEROLIMUS [Suspect]
     Active Substance: EVEROLIMUS
     Indication: RENAL TRANSPLANT
     Dosage: 0.5 MG, BID
     Route: 048
     Dates: start: 20081208

REACTIONS (4)
  - Polyomavirus-associated nephropathy [Recovering/Resolving]
  - Kidney transplant rejection [Recovering/Resolving]
  - Human polyomavirus infection [Recovered/Resolved with Sequelae]
  - Blood creatinine increased [Recovered/Resolved with Sequelae]

NARRATIVE: CASE EVENT DATE: 20080929
